FAERS Safety Report 11447409 (Version 1)
Quarter: 2015Q3

REPORT INFORMATION
  Report Type: Spontaneous
  Country: US (occurrence: US)
  Receive Date: 20150902
  Receipt Date: 20150902
  Transmission Date: 20151125
  Serious: No
  Sender: FDA-Public Use
  Company Number: US-JNJFOC-20150722696

PATIENT

DRUGS (2)
  1. CABOZANTINIB [Interacting]
     Active Substance: CABOZANTINIB
     Indication: PRODUCT USED FOR UNKNOWN INDICATION
     Route: 065
  2. KETOCONAZOLE. [Suspect]
     Active Substance: KETOCONAZOLE
     Indication: PRODUCT USED FOR UNKNOWN INDICATION
     Dosage: DAYS 1 TO 27, 400 MG AT TIME 0 EACH STUDY DAY
     Route: 065

REACTIONS (2)
  - Metabolic disorder [Unknown]
  - Drug interaction [Unknown]
